FAERS Safety Report 5040153-8 (Version None)
Quarter: 2006Q2

REPORT INFORMATION
  Report Type: 
  Country: None (occurrence: None)
  Receive Date: 20060630
  Receipt Date: 20060509
  Transmission Date: 20061013
  Serious: Yes (Hospitalization)
  Sender: FDA-Public Use
  Company Number: 2006UW09182

PATIENT
  Age: 26444 Day
  Sex: Male

DRUGS (14)
  1. STUDY PROCEDURE [Suspect]
     Indication: CHRONIC OBSTRUCTIVE PULMONARY DISEASE
  2. BUDESONIDE HFA PMDI [Suspect]
     Indication: CHRONIC OBSTRUCTIVE PULMONARY DISEASE
     Route: 055
     Dates: start: 20060309
  3. FORMOTEROL TURBUHALER [Suspect]
     Indication: CHRONIC OBSTRUCTIVE PULMONARY DISEASE
     Route: 055
     Dates: start: 20060309
  4. ALBUTEROL [Concomitant]
     Indication: CHRONIC OBSTRUCTIVE PULMONARY DISEASE
     Route: 055
     Dates: start: 20060309
  5. XALATAN [Concomitant]
     Indication: GLAUCOMA
     Route: 031
  6. PATAROL [Concomitant]
     Indication: RHINITIS ALLERGIC
  7. MYSOLINE [Concomitant]
     Indication: TREMOR
     Route: 048
  8. ATROVENT [Concomitant]
     Indication: RHINITIS ALLERGIC
     Dosage: 0.3 %
     Route: 055
  9. CELEBREX [Concomitant]
     Indication: BACK PAIN
     Dates: start: 20060301
  10. HYDROXYZINE [Concomitant]
     Indication: ECZEMA
     Route: 048
  11. CLARINEX [Concomitant]
     Indication: RHINITIS ALLERGIC
     Route: 048
  12. TRIAMTERENE AND HYDROCHLOROTHIAZIDE [Concomitant]
     Indication: MENIERE'S DISEASE
     Route: 048
  13. NEXIUM [Concomitant]
     Indication: PEPTIC ULCER
     Route: 048
     Dates: start: 20051104
  14. FLOMAX [Concomitant]
     Indication: DYSURIA
     Route: 048
     Dates: start: 20060420

REACTIONS (1)
  - LOBAR PNEUMONIA [None]
